FAERS Safety Report 9001840 (Version 1)
Quarter: 2013Q1

REPORT INFORMATION
  Report Type: Spontaneous
  Country: US (occurrence: US)
  Receive Date: 20130107
  Receipt Date: 20130107
  Transmission Date: 20140127
  Serious: Yes (Other)
  Sender: FDA-Public Use
  Company Number: US-PFIZER INC-2013003273

PATIENT
  Age: 73 Year
  Sex: Male
  Weight: 73.47 kg

DRUGS (1)
  1. LIPITOR [Suspect]
     Dosage: UNK
     Dates: end: 2010

REACTIONS (2)
  - Dementia Alzheimer^s type [Not Recovered/Not Resolved]
  - Amnesia [Not Recovered/Not Resolved]
